FAERS Safety Report 18920051 (Version 1)
Quarter: 2021Q1

REPORT INFORMATION
  Report Type: Spontaneous
  Country: US (occurrence: US)
  Receive Date: 20210222
  Receipt Date: 20210222
  Transmission Date: 20210420
  Serious: No
  Sender: FDA-Public Use
  Company Number: US-TEVA-2021-US-1881759

PATIENT
  Age: 63 Year
  Sex: Male

DRUGS (1)
  1. METOCLOPRAMIDE. [Suspect]
     Active Substance: METOCLOPRAMIDE
     Indication: GASTROOESOPHAGEAL REFLUX DISEASE
     Dosage: TAKE THREE TIMES A DAY BEFORE HE ATE AND BEFORE BED
     Route: 065
     Dates: start: 20210211

REACTIONS (4)
  - Scrotal swelling [Not Recovered/Not Resolved]
  - Penis disorder [Unknown]
  - Genital swelling [Unknown]
  - Genital blister [Unknown]

NARRATIVE: CASE EVENT DATE: 20210211
